FAERS Safety Report 6717680-8 (Version None)
Quarter: 2010Q2

REPORT INFORMATION
  Report Type: 
  Country: None (occurrence: None)
  Receive Date: 20100507
  Receipt Date: 20100507
  Transmission Date: 20101027
  Serious: Yes (Hospitalization, Other)
  Sender: FDA-Public Use
  Company Number: None

PATIENT
  Age: 31 Year
  Sex: Female
  Weight: 77.1115 kg

DRUGS (5)
  1. PRISTIQ [Suspect]
     Indication: ANXIETY
     Dosage: 100MG 1 PER DAY PO
     Route: 048
     Dates: start: 20091111, end: 20100428
  2. PRISTIQ [Suspect]
     Indication: DEPRESSION
     Dosage: 100MG 1 PER DAY PO
     Route: 048
     Dates: start: 20091111, end: 20100428
  3. COUMADIN [Concomitant]
  4. LOVENOX [Concomitant]
  5. TREXIMET [Concomitant]

REACTIONS (10)
  - AGITATION [None]
  - ANXIETY [None]
  - ASTHENIA [None]
  - CONFUSIONAL STATE [None]
  - DEPRESSION [None]
  - FATIGUE [None]
  - IMPAIRED WORK ABILITY [None]
  - NIGHT SWEATS [None]
  - PANIC ATTACK [None]
  - PYREXIA [None]
